FAERS Safety Report 7061562-1 (Version None)
Quarter: 2010Q4

REPORT INFORMATION
  Report Type: 
  Country: None (occurrence: None)
  Receive Date: 20101026
  Receipt Date: 20101014
  Transmission Date: 20110411
  Serious: Yes (Disabling)
  Sender: FDA-Public Use
  Company Number: GB-PFIZER INC-2010125806

PATIENT
  Age: 50 Year
  Sex: Female
  Weight: 78 kg

DRUGS (10)
  1. EPIRUBICIN HYDROCHLORIDE [Suspect]
     Indication: BREAST CANCER
     Dosage: 192 MG, UNK
     Route: 042
     Dates: start: 20090828, end: 20091030
  2. CYCLOPHOSPHAMIDE [Suspect]
     Indication: BREAST CANCER
     Dosage: UNK
     Route: 042
     Dates: start: 20091120, end: 20100219
  3. METHOTREXATE SODIUM [Suspect]
     Indication: BREAST CANCER
     Dosage: UNK
     Route: 042
     Dates: start: 20091120, end: 20100219
  4. FLUOROURACIL [Suspect]
     Indication: BREAST CANCER
     Dosage: UNK
     Route: 042
     Dates: start: 20091120, end: 20100219
  5. DEXAMETHASONE [Concomitant]
     Indication: NAUSEA
     Dosage: UNK
     Dates: start: 20090801, end: 20100201
  6. DEXAMETHASONE [Concomitant]
     Indication: VOMITING
  7. LORAZEPAM [Concomitant]
     Indication: NAUSEA
     Dosage: UNK
     Dates: start: 20090801, end: 20100201
  8. LORAZEPAM [Concomitant]
     Indication: VOMITING
  9. ONDANSETRON [Concomitant]
     Indication: NAUSEA
     Dosage: UNK
     Dates: start: 20090801, end: 20100201
  10. ONDANSETRON [Concomitant]
     Indication: VOMITING

REACTIONS (1)
  - DEAFNESS NEUROSENSORY [None]
